FAERS Safety Report 15238133 (Version 1)
Quarter: 2018Q3

REPORT INFORMATION
  Report Type: Spontaneous
  Country: CA (occurrence: CA)
  Receive Date: 20180803
  Receipt Date: 20180803
  Transmission Date: 20181010
  Serious: Yes (Other)
  Sender: FDA-Public Use
  Company Number: PHHY2018CA062881

PATIENT
  Sex: Female

DRUGS (2)
  1. VALSARTAN SANDOZ [Suspect]
     Active Substance: VALSARTAN
     Indication: BLOOD PRESSURE ABNORMAL
     Dosage: 1 DF, QD
     Route: 065
  2. VALSARTAN SANDOZ [Suspect]
     Active Substance: VALSARTAN
     Dosage: 2 DF, QD
     Route: 065
     Dates: start: 20180530, end: 20180716

REACTIONS (5)
  - Nervousness [Recovered/Resolved]
  - Anxiety [Recovered/Resolved]
  - Haematochezia [Recovering/Resolving]
  - Ovarian cancer [Unknown]
  - Blood pressure increased [Unknown]

NARRATIVE: CASE EVENT DATE: 2016
